FAERS Safety Report 6140377-2 (Version None)
Quarter: 2009Q1

REPORT INFORMATION
  Report Type: 
  Country: None (occurrence: None)
  Receive Date: 20090331
  Receipt Date: 20090331
  Transmission Date: 20090719
  Serious: Yes (Other)
  Sender: FDA-Public Use
  Company Number: None

PATIENT
  Age: 38 Year
  Sex: Female
  Weight: 87.0906 kg

DRUGS (2)
  1. ZANAFLEX [Suspect]
     Indication: BACK PAIN
     Dosage: 4 MG 1 TAB Q8HRS PO
     Route: 048
     Dates: start: 20090306, end: 20090329
  2. ZANAFLEX [Suspect]
     Indication: INTERVERTEBRAL DISC PROTRUSION
     Dosage: 4 MG 1 TAB Q8HRS PO
     Route: 048
     Dates: start: 20090306, end: 20090329

REACTIONS (3)
  - HERPES SIMPLEX [None]
  - HERPES ZOSTER [None]
  - ORAL CANDIDIASIS [None]
